FAERS Safety Report 11088178 (Version 2)
Quarter: 2015Q2

REPORT INFORMATION
  Report Type: Report from Study
  Country: US (occurrence: US)
  Receive Date: 20150504
  Receipt Date: 20150619
  Transmission Date: 20150821
  Serious: Yes (Other)
  Sender: FDA-Public Use
  Company Number: US-AMGEN-USASL2015041613

PATIENT
  Age: 83 Year
  Sex: Male
  Weight: 102.9 kg

DRUGS (1)
  1. ARANESP [Suspect]
     Active Substance: DARBEPOETIN ALFA
     Indication: PLASMA CELL MYELOMA
     Dosage: 150 MUG, Q2WK
     Route: 058
     Dates: start: 20130926, end: 20150318

REACTIONS (3)
  - Blood potassium increased [Unknown]
  - Cardiac arrest [Not Recovered/Not Resolved]
  - PCO2 increased [Unknown]

NARRATIVE: CASE EVENT DATE: 20150402
